FAERS Safety Report 5484473-1 (Version None)
Quarter: 2007Q4

REPORT INFORMATION
  Report Type: 
  Country: None (occurrence: None)
  Receive Date: 20071010
  Receipt Date: 20060815
  Transmission Date: 20080405
  Serious: Yes (Death)
  Sender: FDA-Public Use
  Company Number: US021372

PATIENT
  Age: 63 Year
  Sex: Female
  Weight: 48.9885 kg

DRUGS (2)
  1. PROVIGIL [Suspect]
     Dosage: 200 MG QD ORAL
     Route: 048
     Dates: start: 20060802, end: 20060807
  2. DILANTIN [Concomitant]

REACTIONS (2)
  - CEREBROVASCULAR ACCIDENT [None]
  - INSOMNIA [None]
